FAERS Safety Report 17324493 (Version 2)
Quarter: 2020Q3

REPORT INFORMATION
  Report Type: Spontaneous
  Country: US (occurrence: US)
  Receive Date: 20200127
  Receipt Date: 20200818
  Transmission Date: 20201102
  Serious: Yes (Hospitalization, Other)
  Sender: FDA-Public Use
  Company Number: US-TEVA-2020-US-1173827

PATIENT
  Age: 30 Year
  Sex: Male

DRUGS (4)
  1. TRAZODONE [Concomitant]
     Active Substance: TRAZODONE HYDROCHLORIDE
     Indication: SLEEP DISORDER
     Dosage: PRN
     Route: 065
  2. CLOZAPINE. [Suspect]
     Active Substance: CLOZAPINE
     Indication: BIPOLAR DISORDER
     Route: 065
     Dates: start: 2009
  3. CLOZAPINE. [Suspect]
     Active Substance: CLOZAPINE
     Indication: SCHIZOAFFECTIVE DISORDER
     Route: 065
  4. CLOZAPINE. [Suspect]
     Active Substance: CLOZAPINE
     Indication: AUTISM SPECTRUM DISORDER

REACTIONS (8)
  - Weight increased [Unknown]
  - Psychotic disorder [Unknown]
  - Delayed sleep phase [Unknown]
  - Hypersomnia [Unknown]
  - Lower limb fracture [Unknown]
  - Irregular sleep phase [Unknown]
  - Depressed mood [Unknown]
  - Insomnia [Unknown]

NARRATIVE: CASE EVENT DATE: 201804
